FAERS Safety Report 4331552-8 (Version None)
Quarter: 2004Q2

REPORT INFORMATION
  Report Type: 
  Country: None (occurrence: None)
  Receive Date: 20040402
  Receipt Date: 20040326
  Transmission Date: 20050107
  Serious: Yes (Life-Threatening, Hospitalization)
  Sender: FDA-Public Use
  Company Number: GB-MERCK-0403GBR00295

PATIENT
  Age: 38 Year
  Weight: 83 kg

DRUGS (3)
  1. MORPHINE [Concomitant]
     Route: 048
     Dates: start: 20040213, end: 20040301
  2. VIOXX [Suspect]
     Route: 048
     Dates: start: 20040220
  3. SENNA [Concomitant]
     Route: 048
     Dates: start: 20040220, end: 20040301

REACTIONS (1)
  - MYOCARDIAL INFARCTION [None]
